FAERS Safety Report 4279379-X (Version None)
Quarter: 2004Q1

REPORT INFORMATION
  Report Type: 
  Country: None (occurrence: None)
  Receive Date: 20040126
  Receipt Date: 20040126
  Transmission Date: 20041129
  Serious: Yes (Other)
  Sender: FDA-Public Use
  Company Number: None

PATIENT
  Age: 28 Year
  Sex: Female
  Weight: 95.2554 kg

DRUGS (4)
  1. LEXAPRO [Suspect]
     Indication: ANXIETY
     Dosage: 5 MG ONCE DAILY ORAL
     Route: 048
     Dates: start: 20030928, end: 20030929
  2. LEXAPRO [Suspect]
     Indication: DEPRESSION
     Dosage: 5 MG ONCE DAILY ORAL
     Route: 048
     Dates: start: 20030928, end: 20030929
  3. LEXAPRO [Suspect]
     Indication: PREMENSTRUAL SYNDROME
     Dosage: 5 MG ONCE DAILY ORAL
     Route: 048
     Dates: start: 20030928, end: 20030929
  4. BENADRYL [Concomitant]

REACTIONS (1)
  - MUSCLE TWITCHING [None]
